FAERS Safety Report 24159791 (Version 3)
Quarter: 2024Q3

REPORT INFORMATION
  Report Type: Spontaneous
  Country: JP (occurrence: JP)
  Receive Date: 20240731
  Receipt Date: 20240919
  Transmission Date: 20241016
  Serious: Yes (Hospitalization, Other)
  Sender: SUNOVION
  Company Number: JP-DSPHARMA-2024SMP011340

PATIENT

DRUGS (6)
  1. LATUDA [Suspect]
     Active Substance: LURASIDONE HYDROCHLORIDE
     Indication: Neurodevelopmental disorder
     Dosage: 10 MG, QD
     Route: 048
     Dates: start: 20240229, end: 202406
  2. LATUDA [Suspect]
     Active Substance: LURASIDONE HYDROCHLORIDE
     Dosage: 20 MG, QD
     Route: 048
     Dates: start: 202407, end: 20240724
  3. EBASTINE [Suspect]
     Active Substance: EBASTINE
     Indication: Neurodevelopmental disorder
     Dosage: 10 MG, QD
     Route: 048
  4. ESCITALOPRAM [Concomitant]
     Active Substance: ESCITALOPRAM OXALATE
     Indication: Neurodevelopmental disorder
     Dosage: 20 MG, QD
     Route: 048
  5. RAMELTEON [Concomitant]
     Active Substance: RAMELTEON
     Indication: Neurodevelopmental disorder
     Dosage: 8 MG, QD
     Route: 048
  6. ESZOPICLONE [Concomitant]
     Active Substance: ESZOPICLONE
     Indication: Neurodevelopmental disorder
     Dosage: 3 MG, QD
     Route: 048

REACTIONS (2)
  - Diabetes mellitus [Recovering/Resolving]
  - Off label use [Unknown]

NARRATIVE: CASE EVENT DATE: 20240718
